FAERS Safety Report 11230064 (Version 3)
Quarter: 2015Q3

REPORT INFORMATION
  Report Type: Spontaneous
  Country: JP (occurrence: JP)
  Receive Date: 20150701
  Receipt Date: 20150805
  Transmission Date: 20151125
  Serious: Yes (Other)
  Sender: FDA-Public Use
  Company Number: JP-ROCHE-1600319

PATIENT
  Age: 17 Year
  Sex: Male

DRUGS (7)
  1. CICLOSPORIN [Concomitant]
     Active Substance: CYCLOSPORINE
     Indication: NEPHROTIC SYNDROME
     Dosage: DOSAGE IS UNCERTAIN.
     Route: 065
  2. PREDNISOLONE. [Concomitant]
     Active Substance: PREDNISOLONE
     Indication: NEPHROTIC SYNDROME
     Dosage: DOSAGE IS UNCERTAIN.
     Route: 065
  3. CELLCEPT [Suspect]
     Active Substance: MYCOPHENOLATE MOFETIL\MYCOPHENOLATE MOFETIL HYDROCHLORIDE
     Indication: NEPHROTIC SYNDROME
     Dosage: DOSAGE IS UNCERTAIN.
     Route: 048
  4. METHYLPREDNISOLONE. [Concomitant]
     Active Substance: METHYLPREDNISOLONE
     Indication: NEPHROTIC SYNDROME
     Dosage: DOSAGE IS UNCERTAIN.
     Route: 065
  5. RITUXIMAB [Concomitant]
     Active Substance: RITUXIMAB
     Indication: NEPHROTIC SYNDROME
     Dosage: DOSAGE IS UNCERTAIN.
     Route: 065
  6. MIZORIBINE [Concomitant]
     Active Substance: MIZORIBINE
     Indication: NEPHROTIC SYNDROME
     Dosage: DOSAGE IS UNCERTAIN.
     Route: 065
  7. ENDOXAN [Concomitant]
     Active Substance: CYCLOPHOSPHAMIDE
     Indication: NEPHROTIC SYNDROME
     Dosage: DOSAGE IS UNCERTAIN.
     Route: 065

REACTIONS (4)
  - Renal vein thrombosis [Recovered/Resolved]
  - Off label use [Unknown]
  - Shock [Unknown]
  - Vena cava thrombosis [Recovered/Resolved]
